FAERS Safety Report 18522283 (Version 1)
Quarter: 2020Q4

REPORT INFORMATION
  Report Type: Spontaneous
  Country: US (occurrence: US)
  Receive Date: 20201119
  Receipt Date: 20201119
  Transmission Date: 20210114
  Serious: Yes (Hospitalization)
  Sender: FDA-Public Use
  Company Number: None

PATIENT
  Age: 58 Year
  Sex: Female
  Weight: 90 kg

DRUGS (7)
  1. OMEPRAZOLE. [Concomitant]
     Active Substance: OMEPRAZOLE
  2. VITAMIN B12 [Concomitant]
     Active Substance: CYANOCOBALAMIN
  3. DEXTROAMPHETAMINE. [Concomitant]
     Active Substance: DEXTROAMPHETAMINE
  4. LEVANTHYROLE [Concomitant]
  5. D [Concomitant]
  6. FLUTICASONE PROPIONATE AND SALMETEROL DISKUS [Suspect]
     Active Substance: FLUTICASONE PROPIONATE\SALMETEROL XINAFOATE
     Indication: ASTHMA
     Dosage: ?          OTHER STRENGTH:MCG;QUANTITY:1 INHALATION(S);?
     Route: 055
     Dates: start: 20201119, end: 20201119
  7. IRON [Concomitant]
     Active Substance: IRON

REACTIONS (8)
  - Myocardial infarction [None]
  - Paraesthesia oral [None]
  - Vomiting [None]
  - Dyspnoea [None]
  - Pulmonary congestion [None]
  - Pharyngeal swelling [None]
  - Blood pressure increased [None]
  - Anaphylactic shock [None]

NARRATIVE: CASE EVENT DATE: 20201119
